FAERS Safety Report 9913586 (Version 1)
Quarter: 2014Q1

REPORT INFORMATION
  Report Type: Spontaneous
  Country: US (occurrence: None)
  Receive Date: 20140214
  Receipt Date: 20140214
  Transmission Date: 20141002
  Serious: Yes (Death, Hospitalization)
  Sender: FDA-Public Use
  Company Number: AUR-APL-2014-01211

PATIENT
  Age: 64 Year
  Sex: Female

DRUGS (5)
  1. CITALOPRAM [Suspect]
     Indication: PRODUCT USED FOR UNKNOWN INDICATION
     Route: 048
  2. ALPRAZOLAM (ALPRAZOLAM) [Suspect]
     Route: 048
  3. DILTIAZEM (DILTIAZEM) (DILTIAZEM) [Suspect]
     Route: 048
  4. METOPROLOL (METOPROLOL) [Suspect]
     Route: 048
  5. SITAGLIPTIN [Suspect]
     Route: 048

REACTIONS (21)
  - Completed suicide [None]
  - Toxicity to various agents [None]
  - Exposure via ingestion [None]
  - Unresponsive to stimuli [None]
  - Blood pressure systolic increased [None]
  - Drug screen positive [None]
  - Blood pressure systolic decreased [None]
  - Heart rate decreased [None]
  - Nodal rhythm [None]
  - Hypotension [None]
  - Dialysis [None]
  - Ventricular extrasystoles [None]
  - Mydriasis [None]
  - Acidosis [None]
  - Anuria [None]
  - Thrombocytopenia [None]
  - Tachycardia [None]
  - Hypertension [None]
  - Atrial fibrillation [None]
  - Poor peripheral circulation [None]
  - Agitation [None]
